FAERS Safety Report 16084251 (Version 1)
Quarter: 2019Q1

REPORT INFORMATION
  Report Type: Spontaneous
  Country: US (occurrence: US)
  Receive Date: 20190318
  Receipt Date: 20190318
  Transmission Date: 20190418
  Serious: No
  Sender: FDA-Public Use
  Company Number: US-PFIZER INC-2019113568

PATIENT
  Age: 69 Year
  Sex: Female

DRUGS (3)
  1. COLESTID [Suspect]
     Active Substance: COLESTIPOL HYDROCHLORIDE
     Indication: COLITIS MICROSCOPIC
     Dosage: UNK
  2. LOMOTIL [Suspect]
     Active Substance: ATROPINE SULFATE\DIPHENOXYLATE HYDROCHLORIDE
     Indication: COLITIS MICROSCOPIC
     Dosage: UNK, AS NEEDED (AS NEEDED UP TO 4 TIMES/DAY)
  3. FIBERCON [Suspect]
     Active Substance: CALCIUM POLYCARBOPHIL
     Indication: COLITIS MICROSCOPIC
     Dosage: 1 DF, 2X/DAY

REACTIONS (2)
  - Drug ineffective [Unknown]
  - Intentional product misuse [Unknown]
